FAERS Safety Report 16131130 (Version 4)
Quarter: 2020Q2

REPORT INFORMATION
  Report Type: Report from Study
  Country: US (occurrence: US)
  Receive Date: 20190328
  Receipt Date: 20200616
  Transmission Date: 20200713
  Serious: Yes (Hospitalization)
  Sender: FDA-Public Use
  Company Number: US-ACTELION-A-NJ2018-172058

PATIENT
  Age: 47 Year
  Sex: Male
  Weight: 54.88 kg

DRUGS (3)
  1. ADCIRCA [Concomitant]
     Active Substance: TADALAFIL
  2. NARCAN [Concomitant]
     Active Substance: NALOXONE HYDROCHLORIDE
  3. TRACLEER [Suspect]
     Active Substance: BOSENTAN
     Indication: PULMONARY ARTERIAL HYPERTENSION
     Dosage: 125 MG, BID
     Route: 048

REACTIONS (9)
  - Haemoptysis [Unknown]
  - Dizziness [Unknown]
  - Liver disorder [Unknown]
  - Heart rate decreased [Unknown]
  - Product dose omission [Unknown]
  - Unresponsive to stimuli [Unknown]
  - Hospice care [Unknown]
  - Pneumonia [Unknown]
  - Swelling [Unknown]

NARRATIVE: CASE EVENT DATE: 201812
